FAERS Safety Report 6443207-4 (Version None)
Quarter: 2009Q4

REPORT INFORMATION
  Report Type: 
  Country: None (occurrence: None)
  Receive Date: 20091117
  Receipt Date: 20091105
  Transmission Date: 20100525
  Serious: Yes (Hospitalization, Other)
  Sender: FDA-Public Use
  Company Number: CL-ELI_LILLY_AND_COMPANY-CL200908005262

PATIENT
  Age: 18 Year
  Sex: Female

DRUGS (8)
  1. SYMBYAX [Suspect]
     Indication: DEPRESSION
     Dosage: 6 MG, DAILY (1/D)
     Route: 065
     Dates: start: 20090424
  2. SYMBYAX [Suspect]
     Dosage: 25 MG, DAILY (1/D)
     Route: 065
     Dates: start: 20090424
  3. PROZAC [Suspect]
     Indication: DEPRESSION
     Dosage: 20 MG, UNKNOWN
     Route: 048
     Dates: start: 20090525
  4. PROZAC [Suspect]
     Dosage: 40 MG, UNKNOWN
     Route: 048
  5. PROZAC [Suspect]
     Dosage: 60 MG, UNKNOWN
     Route: 048
  6. PROZAC [Suspect]
     Dosage: 20 MG, UNKNOWN
     Route: 065
  7. ZYPREXA [Suspect]
     Dosage: 5 MG, UNKNOWN
     Route: 065
  8. VALPROIC ACID [Concomitant]
     Dosage: 750 MG, UNKNOWN
     Route: 065

REACTIONS (6)
  - BRAIN OEDEMA [None]
  - CEREBRAL HAEMATOMA [None]
  - FALL [None]
  - LOSS OF CONSCIOUSNESS [None]
  - SYNCOPE [None]
  - TRAUMATIC BRAIN INJURY [None]
